FAERS Safety Report 4801462-8 (Version None)
Quarter: 2005Q4

REPORT INFORMATION
  Report Type: 
  Country: None (occurrence: None)
  Receive Date: 20051011
  Receipt Date: 20050927
  Transmission Date: 20060501
  Serious: Yes (Other)
  Sender: FDA-Public Use
  Company Number: 2005134886

PATIENT
  Sex: Male

DRUGS (3)
  1. ZOLOFT [Suspect]
     Indication: ILL-DEFINED DISORDER
  2. TRAMADOL HCL [Suspect]
     Indication: ILL-DEFINED DISORDER
  3. VALTREX [Concomitant]

REACTIONS (8)
  - CAESAREAN SECTION [None]
  - DRUG EXPOSURE DURING PREGNANCY [None]
  - INAPPROPRIATE ANTIDIURETIC HORMONE SECRETION [None]
  - IRRITABILITY [None]
  - NEONATAL DISORDER [None]
  - NEONATAL RESPIRATORY DISTRESS SYNDROME [None]
  - TRANSIENT TACHYPNOEA OF THE NEWBORN [None]
  - URINE OUTPUT DECREASED [None]
